FAERS Safety Report 12140439 (Version 1)
Quarter: 2016Q1

REPORT INFORMATION
  Report Type: Spontaneous
  Country: US (occurrence: None)
  Receive Date: 20160302
  Receipt Date: 20160302
  Transmission Date: 20160526
  Serious: Yes (Disabling, Other)
  Sender: FDA-Public Use
  Company Number: None

PATIENT
  Age: 60 Year
  Sex: Male
  Weight: 83.92 kg

DRUGS (7)
  1. DILTIAZEM VARIED OVER TIME UP TO 300 MG [Suspect]
     Active Substance: DILTIAZEM
     Indication: DYSPNOEA
     Route: 048
     Dates: start: 20151113, end: 20160201
  2. BUTALBITAL W/CODEINE [Concomitant]
  3. DILTIAZEM VARIED OVER TIME UP TO 300 MG [Suspect]
     Active Substance: DILTIAZEM
     Indication: CARDIAC VENTRICULAR DISORDER
     Route: 048
     Dates: start: 20151113, end: 20160201
  4. SERTRALINE [Concomitant]
     Active Substance: SERTRALINE HYDROCHLORIDE
  5. LOSARTAN. [Concomitant]
     Active Substance: LOSARTAN
  6. MONTELEUKAST [Concomitant]
  7. ZYRTEC [Concomitant]
     Active Substance: CETIRIZINE HYDROCHLORIDE

REACTIONS (1)
  - Diabetes mellitus [None]

NARRATIVE: CASE EVENT DATE: 20160201
